FAERS Safety Report 24041914 (Version 2)
Quarter: 2025Q4

REPORT INFORMATION
  Report Type: Spontaneous
  Country: US (occurrence: US)
  Receive Date: 20240702
  Receipt Date: 20251111
  Transmission Date: 20260118
  Serious: Yes (Death, Life-Threatening, Other)
  Sender: BAYER HEALTHCARE LLC
  Company Number: US-BAYER-2024A091273

PATIENT
  Age: 59 Year
  Sex: Male

DRUGS (1)
  1. TINACTIN [Suspect]
     Active Substance: TOLNAFTATE

REACTIONS (4)
  - Mesothelioma [Fatal]
  - Anxiety [None]
  - Pain [None]
  - Exposure to chemical pollution [None]

NARRATIVE: CASE EVENT DATE: 20230804
